FAERS Safety Report 10620298 (Version 5)
Quarter: 2015Q3

REPORT INFORMATION
  Report Type: Report from Study
  Country: US (occurrence: US)
  Receive Date: 20141202
  Receipt Date: 20150811
  Transmission Date: 20151125
  Serious: Yes (Other)
  Sender: FDA-Public Use
  Company Number: US-SA-2014SA135123

PATIENT
  Age: 21 Year
  Sex: Male

DRUGS (3)
  1. AUBAGIO [Suspect]
     Active Substance: TERIFLUNOMIDE
     Indication: MULTIPLE SCLEROSIS
     Route: 048
     Dates: start: 20140731, end: 20141106
  2. AUBAGIO [Suspect]
     Active Substance: TERIFLUNOMIDE
     Indication: MULTIPLE SCLEROSIS
     Route: 048
     Dates: start: 20141204
  3. TECFIDERA [Concomitant]
     Active Substance: DIMETHYL FUMARATE
     Dates: start: 20140713, end: 20140727

REACTIONS (15)
  - Dyspnoea [Unknown]
  - Anxiety [Unknown]
  - Tonsillitis [Recovering/Resolving]
  - Pain in extremity [Unknown]
  - Pharyngitis [Recovering/Resolving]
  - Pyrexia [Unknown]
  - Multiple sclerosis relapse [Unknown]
  - Nasopharyngitis [Unknown]
  - Feeling abnormal [Unknown]
  - Unevaluable event [Not Recovered/Not Resolved]
  - Lymphadenopathy [Recovering/Resolving]
  - Asthma exercise induced [Unknown]
  - Alopecia [Unknown]
  - Restless legs syndrome [Unknown]
  - Back pain [Unknown]

NARRATIVE: CASE EVENT DATE: 2014
